FAERS Safety Report 20854978 (Version 3)
Quarter: 2022Q3

REPORT INFORMATION
  Report Type: Report from Study
  Country: US (occurrence: US)
  Receive Date: 20220520
  Receipt Date: 20220921
  Transmission Date: 20221026
  Serious: Yes (Hospitalization)
  Sender: FDA-Public Use
  Company Number: US-BIOGEN-2022BI01123273

PATIENT
  Sex: Female

DRUGS (12)
  1. VUMERITY [Suspect]
     Active Substance: DIROXIMEL FUMARATE
     Indication: Multiple sclerosis
     Route: 050
     Dates: start: 20220418, end: 202205
  2. VUMERITY [Suspect]
     Active Substance: DIROXIMEL FUMARATE
     Route: 050
     Dates: start: 20220405
  3. GABAPENTIN [Concomitant]
     Active Substance: GABAPENTIN
     Indication: Product used for unknown indication
     Route: 050
  4. ACIDOPHILUS [Concomitant]
     Active Substance: LACTOBACILLUS ACIDOPHILUS
     Indication: Product used for unknown indication
     Dosage: STOP AFTER 7 DAYS - 2 TABLETS 2 TIMES A DAY
     Route: 050
  5. XANAX [Concomitant]
     Active Substance: ALPRAZOLAM
     Indication: Product used for unknown indication
     Dosage: 0.5 MILLIGRAM ORAL ONCE - STOP AFTER 1 DOSES
     Route: 050
  6. ATIVAN [Concomitant]
     Active Substance: LORAZEPAM
     Indication: Agitation
     Dosage: GIVE 1 MG IV PUSH ONCE
     Route: 050
  7. REGLAN [Concomitant]
     Active Substance: METOCLOPRAMIDE HYDROCHLORIDE
     Indication: Product used for unknown indication
     Dosage: GIVE 10 MG ONCE IV PUSH
     Route: 050
  8. ZOFRAN ODT [Concomitant]
     Active Substance: ONDANSETRON HYDROCHLORIDE
     Indication: Product used for unknown indication
     Dosage: GIVE 4 MG ORAL ONCE
     Route: 050
  9. ZOFRAN ODT [Concomitant]
     Active Substance: ONDANSETRON HYDROCHLORIDE
     Dosage: GIVE 4 MG ONCE IV PUSH
     Route: 050
  10. SODIUM CHLORIDE [Concomitant]
     Active Substance: SODIUM CHLORIDE
     Indication: Product used for unknown indication
     Route: 050
  11. SODIUM CHLORIDE [Concomitant]
     Active Substance: SODIUM CHLORIDE
     Dosage: SODIUM CHLORIDE 0.9 PERCENT WITHOUT ADDITIV; GIVE 1000 ML IV CONTINUOUS HANG TIME 10 H
     Route: 050
  12. SOLU-MEDROL [Concomitant]
     Active Substance: METHYLPREDNISOLONE SODIUM SUCCINATE
     Indication: Product used for unknown indication
     Route: 050

REACTIONS (6)
  - Systemic inflammatory response syndrome [Recovered/Resolved]
  - Supraventricular tachycardia [Recovered/Resolved]
  - Pulmonary sepsis [Unknown]
  - Multiple sclerosis relapse [Unknown]
  - Abdominal discomfort [Unknown]
  - Flushing [Unknown]

NARRATIVE: CASE EVENT DATE: 20220101
